FAERS Safety Report 6156323-1 (Version None)
Quarter: 2009Q2

REPORT INFORMATION
  Report Type: 
  Country: None (occurrence: None)
  Receive Date: 20090413
  Receipt Date: 20090319
  Transmission Date: 20091009
  Serious: Yes (Other)
  Sender: FDA-Public Use
  Company Number: OPER20090068

PATIENT
  Age: 49 Year
  Sex: Female
  Weight: 54.4316 kg

DRUGS (2)
  1. OPANA ER [Suspect]
     Indication: TRIGEMINAL NEURALGIA
     Dosage: 20 MG, 4 TIMES A DAY, PER ORAL, 20-40 MG, BID, PER ORAL
     Route: 048
     Dates: start: 20090309, end: 20090301
  2. OPANA ER [Suspect]
     Indication: TRIGEMINAL NEURALGIA
     Dosage: 20 MG, 4 TIMES A DAY, PER ORAL, 20-40 MG, BID, PER ORAL
     Route: 048
     Dates: start: 20090301

REACTIONS (3)
  - DRUG EFFECT DECREASED [None]
  - INAPPROPRIATE SCHEDULE OF DRUG ADMINISTRATION [None]
  - PAIN IN EXTREMITY [None]
